FAERS Safety Report 23831928 (Version 1)
Quarter: 2024Q2

REPORT INFORMATION
  Report Type: Spontaneous
  Country: IL (occurrence: IL)
  Receive Date: 20240508
  Receipt Date: 20240508
  Transmission Date: 20240716
  Serious: Yes (Other)
  Sender: FDA-Public Use
  Company Number: IL-009507513-2405ISR001168

PATIENT
  Age: 65 Year
  Sex: Male

DRUGS (3)
  1. BELZUTIFAN [Suspect]
     Active Substance: BELZUTIFAN
     Indication: Clear cell renal cell carcinoma
     Dosage: UNK
     Route: 048
     Dates: start: 2023
  2. LENVATINIB MESYLATE [Suspect]
     Active Substance: LENVATINIB MESYLATE
     Indication: Clear cell renal cell carcinoma
     Dosage: UNK
     Route: 048
     Dates: start: 2022, end: 202306
  3. EVEROLIMUS [Suspect]
     Active Substance: EVEROLIMUS
     Indication: Clear cell renal cell carcinoma
     Dosage: UNK
     Dates: start: 2022, end: 202306

REACTIONS (6)
  - Malignant neoplasm progression [Unknown]
  - Anaemia [Recovered/Resolved]
  - Anaemia [Unknown]
  - Anaemia [Unknown]
  - Therapy partial responder [Unknown]
  - Off label use [Unknown]

NARRATIVE: CASE EVENT DATE: 20230101
